FAERS Safety Report 9496432 (Version 1)
Quarter: 2013Q3

REPORT INFORMATION
  Report Type: Spontaneous
  Country: US (occurrence: None)
  Receive Date: 20130829
  Receipt Date: 20130829
  Transmission Date: 20140515
  Serious: Yes (Hospitalization)
  Sender: FDA-Public Use
  Company Number: UTC-036989

PATIENT
  Age: 20 Year
  Sex: Female
  Weight: 48.64 kg

DRUGS (1)
  1. REMODULIN [Suspect]

REACTIONS (1)
  - Haemoptysis [None]
